FAERS Safety Report 5121868-X (Version None)
Quarter: 2006Q4

REPORT INFORMATION
  Report Type: 
  Country: None (occurrence: None)
  Receive Date: 20061006
  Receipt Date: 20060928
  Transmission Date: 20070319
  Serious: Yes (Death, Hospitalization)
  Sender: FDA-Public Use
  Company Number: FR-MERCK-0609FRA00085

PATIENT
  Age: 62 Year
  Sex: Male
  Weight: 80 kg

DRUGS (6)
  1. ZOCOR [Suspect]
     Indication: HYPERCHOLESTEROLAEMIA
     Route: 048
     Dates: end: 20060910
  2. SPIRONOLACTONE [Concomitant]
     Route: 048
     Dates: end: 20060910
  3. PREDNISONE TAB [Concomitant]
     Route: 048
     Dates: end: 20060910
  4. OMEPRAZOLE [Concomitant]
     Indication: PROPHYLAXIS AGAINST GASTROINTESTINAL ULCER
     Route: 048
     Dates: end: 20060910
  5. TRAMADOL HCL [Concomitant]
     Route: 048
     Dates: end: 20060910
  6. LENALIDOMIDE [Concomitant]
     Indication: MULTIPLE MYELOMA
     Route: 048
     Dates: start: 20060704, end: 20060910

REACTIONS (3)
  - DEATH [None]
  - LOBAR PNEUMONIA [None]
  - RENAL FAILURE ACUTE [None]
